FAERS Safety Report 25725829 (Version 1)
Quarter: 2025Q3

REPORT INFORMATION
  Report Type: Other
  Country: CA (occurrence: CA)
  Receive Date: 20250826
  Receipt Date: 20250826
  Transmission Date: 20251021
  Serious: Yes (Other)
  Sender: APOTEX
  Company Number: CA-APOTEX-2025AP012151

PATIENT
  Sex: Female

DRUGS (1)
  1. IMATINIB [Suspect]
     Active Substance: IMATINIB
     Indication: Philadelphia positive chronic myeloid leukaemia
     Dosage: 400 MILLIGRAM, QD
     Route: 048
     Dates: start: 20230925

REACTIONS (1)
  - Chronic myeloid leukaemia recurrent [Unknown]
